FAERS Safety Report 5058990-2 (Version None)
Quarter: 2006Q3

REPORT INFORMATION
  Report Type: 
  Country: None (occurrence: None)
  Receive Date: 20060719
  Receipt Date: 20060712
  Transmission Date: 20061208
  Serious: Yes (Other)
  Sender: FDA-Public Use
  Company Number: 14390

PATIENT
  Age: 46 Year
  Sex: Female

DRUGS (1)
  1. PACLITAXEL [Suspect]
     Indication: BREAST CANCER
     Dosage: 306 MG IV
     Route: 042
     Dates: start: 20060711

REACTIONS (2)
  - HYPERSENSITIVITY [None]
  - INFUSION RELATED REACTION [None]
